FAERS Safety Report 21740405 (Version 1)
Quarter: 2022Q4

REPORT INFORMATION
  Report Type: Spontaneous
  Country: US (occurrence: US)
  Receive Date: 20221216
  Receipt Date: 20221216
  Transmission Date: 20230113
  Serious: Yes (Other)
  Sender: FDA-Public Use
  Company Number: US-SA-SAC20221215000610

PATIENT
  Age: 67 Year
  Sex: Male

DRUGS (1)
  1. DUPIXENT [Suspect]
     Active Substance: DUPILUMAB
     Indication: Dermatitis atopic
     Dosage: 300 MG, QOW (300 MG/2ML; EVERY 2 WEEKS)
     Route: 058
     Dates: start: 20220316

REACTIONS (3)
  - Pneumonia [Not Recovered/Not Resolved]
  - Malaise [Not Recovered/Not Resolved]
  - Dermatitis atopic [Not Recovered/Not Resolved]

NARRATIVE: CASE EVENT DATE: 20221201
